FAERS Safety Report 7210874-7 (Version None)
Quarter: 2010Q4

REPORT INFORMATION
  Report Type: 
  Country: None (occurrence: None)
  Receive Date: 20101227
  Receipt Date: 20101214
  Transmission Date: 20110411
  Serious: Yes (Hospitalization)
  Sender: FDA-Public Use
  Company Number: CIP10003044

PATIENT
  Age: 84 Year
  Sex: Male

DRUGS (32)
  1. ACTONEL [Suspect]
     Dosage: 17.5 MG ONCE WEEKLY, ORAL
     Route: 048
     Dates: start: 20100101, end: 20100804
  2. DIOVAN [Suspect]
     Dosage: 40 MG DAILY, ORAL, 80 MG, DAILY, ORAL, 120 MG, DAILY, ORAL
     Route: 048
     Dates: start: 20100608, end: 20100611
  3. DIOVAN [Suspect]
     Dosage: 40 MG DAILY, ORAL, 80 MG, DAILY, ORAL, 120 MG, DAILY, ORAL
     Route: 048
     Dates: start: 20100601, end: 20100612
  4. DIOVAN [Suspect]
     Dosage: 40 MG DAILY, ORAL, 80 MG, DAILY, ORAL, 120 MG, DAILY, ORAL
     Route: 048
     Dates: start: 20100612, end: 20100716
  5. ACTOS [Suspect]
     Dosage: 15 MG, ORAL
     Route: 048
     Dates: end: 20100101
  6. PLAVIX [Concomitant]
  7. ASPIRIN [Concomitant]
  8. NIKORANMART (NICORANDIL) [Concomitant]
  9. FUROSEMIDE [Concomitant]
  10. GLAKAY (MENATETRONE) [Concomitant]
  11. ALL OTHER THERAPEUTIC PRODUCTS [Concomitant]
  12. LIPITOR [Concomitant]
  13. ALLOPURINOL [Concomitant]
  14. OMEPRAZOLE [Concomitant]
  15. ALOSENIN /00476901/ 9ACHILLEA MILLEFOLIUM, RUBIA TINCTORUM ROOT TINCTU [Concomitant]
  16. SPIRONOLACTONE [Concomitant]
  17. NITRODERM [Concomitant]
  18. HOKUNALIN (TULOBUTEROL HYDROCHLORIDE) [Concomitant]
  19. PIMOBENDAN (PIMOBENDAN) [Concomitant]
  20. AMIODARONE HCL [Concomitant]
  21. FLUTIDE (FLUTICASONE PROPIONATE) [Concomitant]
  22. SULTANOL /00139501/ (SALBUTAMOL) [Concomitant]
  23. RABEPRAZOLE SODIUM [Concomitant]
  24. BUFFERIN [Concomitant]
  25. ALL OTHER THERAPEUTIC PRODUCTS [Concomitant]
  26. SIMVASTATIN HEXAL  (SIMVASTATIN) [Concomitant]
  27. MUCOSAL (ACETYLCYSTEINE) [Concomitant]
  28. FOLIC ACID [Concomitant]
  29. KAMAG G (MAGNESIUM OXIDE) [Concomitant]
  30. ALL OTHER THERAPEUTIC PRODUCTS [Concomitant]
  31. GOODMIN (BROTIZOLAM) [Concomitant]
  32. FEROTYM (FERROUS SODIUM CITRATE) [Concomitant]

REACTIONS (6)
  - ASTHMA [None]
  - CONDITION AGGRAVATED [None]
  - NEPHROSCLEROSIS [None]
  - RENAL ATROPHY [None]
  - RENAL FAILURE [None]
  - VENTRICULAR TACHYCARDIA [None]
